FAERS Safety Report 9274511 (Version 1)
Quarter: 2013Q2

REPORT INFORMATION
  Report Type: Spontaneous
  Country: US (occurrence: US)
  Receive Date: 20130507
  Receipt Date: 20130507
  Transmission Date: 20140414
  Serious: No
  Sender: FDA-Public Use
  Company Number: US-B.I. PHARMACEUTICALS,INC./RIDGEFIELD-2013-BI-12077BP

PATIENT
  Age: 47 Year
  Sex: Female
  Weight: 122 kg

DRUGS (1)
  1. TRADJENTA [Suspect]
     Indication: DIABETES MELLITUS
     Dosage: 5 MG
     Route: 048
     Dates: start: 20130312

REACTIONS (2)
  - Dysphonia [Not Recovered/Not Resolved]
  - Upper respiratory tract infection [Recovered/Resolved]
